FAERS Safety Report 9056453 (Version 1)
Quarter: 2013Q1

REPORT INFORMATION
  Report Type: Spontaneous
  Country: US (occurrence: US)
  Receive Date: 20130204
  Receipt Date: 20130204
  Transmission Date: 20140127
  Serious: Yes (Other)
  Sender: FDA-Public Use
  Company Number: US-ASTRAZENECA-2013SE05837

PATIENT
  Age: 70 Year
  Sex: Female

DRUGS (2)
  1. CRESTOR [Suspect]
     Indication: BLOOD CHOLESTEROL INCREASED
     Route: 048
  2. BONIVA [Concomitant]
     Dosage: EVERY MONTH
     Route: 048

REACTIONS (3)
  - Systemic lupus erythematosus [Unknown]
  - Local swelling [Unknown]
  - Pain in extremity [Unknown]
